FAERS Safety Report 14520624 (Version 3)
Quarter: 2019Q1

REPORT INFORMATION
  Report Type: Spontaneous
  Country: FR (occurrence: FR)
  Receive Date: 20180212
  Receipt Date: 20190110
  Transmission Date: 20190417
  Serious: Yes (Other)
  Sender: FDA-Public Use
  Company Number: FR-MYLANLABS-2018M1008783

PATIENT
  Age: 75 Year
  Sex: Male
  Weight: 84 kg

DRUGS (20)
  1. CISPLATIN. [Suspect]
     Active Substance: CISPLATIN
     Dosage: ONE COURSE ON 20, 21 AND 22DEC2017UNK
     Dates: start: 20171222
  2. METFORMIN [Concomitant]
     Active Substance: METFORMIN HYDROCHLORIDE
     Indication: DIABETES MELLITUS
     Dosage: UNK
  3. NOVONORM [Concomitant]
     Active Substance: REPAGLINIDE
     Indication: PRODUCT USED FOR UNKNOWN INDICATION
     Dosage: 2 MG, UNK
  4. AMLODIPINE [Concomitant]
     Active Substance: AMLODIPINE BESYLATE
     Indication: PRODUCT USED FOR UNKNOWN INDICATION
     Dosage: 5 MG, 1 DOSAGE FORMS DAILY; LONG COURSE TREATMENT FOR MORE THAN 20 YEARS
  5. GEMCITABINE [Suspect]
     Active Substance: GEMCITABINE\GEMCITABINE HYDROCHLORIDE
     Dosage: ONE COURSE,ONE COURSE ON 20, 21 AND 22DEC2017
     Route: 065
     Dates: start: 20171221
  6. KOMBOGLYZE [Concomitant]
     Active Substance: METFORMIN HYDROCHLORIDE\SAXAGLIPTIN
     Indication: DIABETES MELLITUS
     Dosage: 2 DF, 2 DOSAGE FORMS DAILY; LONG COURSE TREATMENT FOR MORE THAN 20 YEARS
  7. TOUJEO [Concomitant]
     Active Substance: INSULIN GLARGINE
     Indication: DIABETES MELLITUS
     Dosage: 12 IU, QD
     Dates: start: 20171230
  8. GEMCITABINE [Suspect]
     Active Substance: GEMCITABINE\GEMCITABINE HYDROCHLORIDE
     Indication: BLADDER CANCER
     Dosage: UNK UNK, CYCLE
     Dates: start: 20171101, end: 20171201
  9. GEMCITABINE [Suspect]
     Active Substance: GEMCITABINE\GEMCITABINE HYDROCHLORIDE
     Dosage: UNK
     Dates: start: 201711, end: 201712
  10. CISPLATIN. [Suspect]
     Active Substance: CISPLATIN
     Indication: BLADDER CANCER
     Dosage: UNK UNK, CYCLE
     Dates: start: 20171101
  11. PREVISCAN                          /00789001/ [Concomitant]
     Active Substance: FLUINDIONE
     Indication: PRODUCT USED FOR UNKNOWN INDICATION
     Dosage: REPLACED WITH INNOHEP IN MID DECEMBER 2017
  12. GEMCITABINE [Suspect]
     Active Substance: GEMCITABINE\GEMCITABINE HYDROCHLORIDE
     Dosage: ONE COURSE ON 20, 21 AND 22DEC2017
     Dates: start: 20171220
  13. CISPLATIN. [Suspect]
     Active Substance: CISPLATIN
     Dosage: UNK UNK, CYCLE
     Dates: start: 201711
  14. CISPLATIN. [Suspect]
     Active Substance: CISPLATIN
     Dosage: ONE COURSE ON 20, 21 AND 22DEC2017UNK
     Dates: start: 20171220
  15. CISPLATIN. [Suspect]
     Active Substance: CISPLATIN
     Dosage: ONE COURSE ON 20, 21 AND 22DEC2017UNK
     Dates: start: 20171221
  16. SIMVASTATIN. [Concomitant]
     Active Substance: SIMVASTATIN
     Indication: PRODUCT USED FOR UNKNOWN INDICATION
     Dosage: 0.5 DF, QD, .5 DOSAGE FORMS DAILY; LONG COURSE TREATMENT FOR MORE THAN 20 YEARS
  17. INSULIN [Concomitant]
     Active Substance: INSULIN NOS
     Indication: DIABETES MELLITUS
     Dosage: UNK
  18. ATENOLOL. [Concomitant]
     Active Substance: ATENOLOL
     Indication: PRODUCT USED FOR UNKNOWN INDICATION
     Dosage: 50 MILLIGRAM, QD
  19. GEMCITABINE [Suspect]
     Active Substance: GEMCITABINE\GEMCITABINE HYDROCHLORIDE
     Dosage: ONE COURSE, CLIC
     Route: 065
     Dates: start: 20171222
  20. INNOHEP [Concomitant]
     Active Substance: TINZAPARIN SODIUM
     Indication: PRODUCT USED FOR UNKNOWN INDICATION
     Dosage: 15000 IU, UNK

REACTIONS (6)
  - Pain in extremity [Not Recovered/Not Resolved]
  - Peripheral swelling [Not Recovered/Not Resolved]
  - General physical health deterioration [Not Recovered/Not Resolved]
  - Phlebitis [Not Recovered/Not Resolved]
  - Pain [Not Recovered/Not Resolved]
  - Gait disturbance [Not Recovered/Not Resolved]

NARRATIVE: CASE EVENT DATE: 20171201
